FAERS Safety Report 4979302-6 (Version None)
Quarter: 2006Q2

REPORT INFORMATION
  Report Type: 
  Country: None (occurrence: None)
  Receive Date: 20060421
  Receipt Date: 20051004
  Transmission Date: 20061013
  Serious: Yes (Hospitalization)
  Sender: FDA-Public Use
  Company Number: US-MERCK-0510USA03539

PATIENT
  Age: 61 Year
  Sex: Female
  Weight: 74 kg

DRUGS (2)
  1. VIOXX [Suspect]
     Indication: RHEUMATOID ARTHRITIS
     Route: 048
     Dates: start: 19990101, end: 20040101
  2. VIOXX [Suspect]
     Indication: OSTEOARTHRITIS
     Route: 048
     Dates: start: 19990101, end: 20040101

REACTIONS (3)
  - ANEURYSM [None]
  - CARDIOVASCULAR DISORDER [None]
  - THROMBOSIS [None]
